FAERS Safety Report 6036380-3 (Version None)
Quarter: 2009Q1

REPORT INFORMATION
  Report Type: 
  Country: None (occurrence: None)
  Receive Date: 20090113
  Receipt Date: 20090105
  Transmission Date: 20090719
  Serious: Yes (Other)
  Sender: FDA-Public Use
  Company Number: CA-ALLERGAN-0900104US

PATIENT
  Sex: Female

DRUGS (5)
  1. PRED FORTE [Suspect]
     Indication: POSTOPERATIVE CARE
     Dosage: 1 GTT, BID
     Route: 047
     Dates: start: 20081226, end: 20081230
  2. PLAVIX [Concomitant]
  3. QUININE [Concomitant]
  4. PREMARIN [Concomitant]
  5. ANTACID TAB [Concomitant]

REACTIONS (4)
  - BLINDNESS TRANSIENT [None]
  - EYE DISORDER [None]
  - EYE INFLAMMATION [None]
  - OCULAR HYPERAEMIA [None]
